FAERS Safety Report 18133296 (Version 1)
Quarter: 2020Q3

REPORT INFORMATION
  Report Type: Spontaneous
  Country: US (occurrence: US)
  Receive Date: 20200811
  Receipt Date: 20200811
  Transmission Date: 20201103
  Serious: No
  Sender: FDA-Public Use
  Company Number: US-BRISTOL-MYERS SQUIBB COMPANY-BMS-2020-064476

PATIENT
  Sex: Female
  Weight: 62.59 kg

DRUGS (2)
  1. ELIQUIS [Suspect]
     Active Substance: APIXABAN
     Dosage: THE CONSUMER TOOK ONE PILL A DAY FOR THREE DAYS.
     Route: 048
     Dates: end: 20200807
  2. ELIQUIS [Suspect]
     Active Substance: APIXABAN
     Indication: CEREBROVASCULAR ACCIDENT PROPHYLAXIS
     Dosage: UNK UNK, BID
     Route: 048

REACTIONS (7)
  - Asthenia [Unknown]
  - Dysgeusia [Unknown]
  - Fatigue [Unknown]
  - Intentional product misuse [Unknown]
  - Feeling jittery [Unknown]
  - Parosmia [Unknown]
  - Skin burning sensation [Unknown]
